FAERS Safety Report 16563146 (Version 7)
Quarter: 2020Q2

REPORT INFORMATION
  Report Type: Report from Study
  Country: US (occurrence: US)
  Receive Date: 20190711
  Receipt Date: 20200417
  Transmission Date: 20200713
  Serious: Yes (Death, Hospitalization)
  Sender: FDA-Public Use
  Company Number: US-ACTELION-A-NJ2019-192690

PATIENT
  Age: 81 Year
  Sex: Female
  Weight: 54.42 kg

DRUGS (9)
  1. ATIVAN [Concomitant]
     Active Substance: LORAZEPAM
  2. COUMADIN [Concomitant]
     Active Substance: WARFARIN SODIUM
  3. CELLCEPT [Concomitant]
     Active Substance: MYCOPHENOLATE MOFETIL\MYCOPHENOLATE MOFETIL HYDROCHLORIDE
  4. TOPROL XL [Concomitant]
     Active Substance: METOPROLOL SUCCINATE
  5. TORSEMIDE. [Concomitant]
     Active Substance: TORSEMIDE
  6. REMERON [Concomitant]
     Active Substance: MIRTAZAPINE
  7. LEVOTHYROXINE. [Concomitant]
     Active Substance: LEVOTHYROXINE
  8. ASA [Concomitant]
     Active Substance: ASPIRIN
  9. TRACLEER [Suspect]
     Active Substance: BOSENTAN
     Indication: PULMONARY ARTERIAL HYPERTENSION
     Dosage: 125 MG, BID
     Route: 048
     Dates: start: 200909

REACTIONS (12)
  - Scleroderma [Fatal]
  - Pulmonary hypertension [Fatal]
  - Femur fracture [Unknown]
  - Acute kidney injury [Recovered/Resolved]
  - Nephropathy [Recovered/Resolved]
  - Malnutrition [Fatal]
  - Atrial fibrillation [Unknown]
  - Cardiac disorder [Unknown]
  - Disease complication [Fatal]
  - Dyspnoea [Unknown]
  - Stent placement [Unknown]
  - Cardiac failure acute [Recovered/Resolved]

NARRATIVE: CASE EVENT DATE: 20190624
